FAERS Safety Report 8902577 (Version 1)
Quarter: 2012Q4

REPORT INFORMATION
  Report Type: 
  Country: ES (occurrence: ES)
  Receive Date: 20121112
  Receipt Date: 20121112
  Transmission Date: 20130627
  Serious: Yes (Hospitalization)
  Sender: FDA-Public Use
  Company Number: PHHY2012ES103810

PATIENT
  Age: 55 Year
  Sex: Female

DRUGS (5)
  1. RIBAVIRIN [Suspect]
     Indication: HEPATITIS C
     Dosage: 800 mg, UNK
     Route: 048
     Dates: start: 20120417, end: 20120525
  2. INCIVO [Concomitant]
     Indication: HEPATITIS C
     Dosage: 2250 mg,
     Route: 048
     Dates: start: 20120417, end: 20120525
  3. INCIVO [Concomitant]
     Indication: HEPATITIS C
  4. PEGASYS [Concomitant]
     Indication: HEPATITIS C
     Dosage: 180 ug, UNK
     Route: 058
     Dates: start: 20120417, end: 20120525
  5. SERETIDE [Concomitant]
     Indication: ASTHMA
     Dosage: 2 DF, 1 inhaler of 120 aplications

REACTIONS (2)
  - Epistaxis [Recovered/Resolved]
  - Anaemia [Recovering/Resolving]
